FAERS Safety Report 5147369-0 (Version None)
Quarter: 2006Q4

REPORT INFORMATION
  Report Type: 
  Country: None (occurrence: None)
  Receive Date: 20061103
  Receipt Date: 20061020
  Transmission Date: 20070319
  Serious: Yes (Death)
  Sender: FDA-Public Use
  Company Number: 2006S1009194

PATIENT
  Age: 76 Year
  Sex: Female

DRUGS (9)
  1. CLOZAPINE [Suspect]
     Indication: BIPOLAR DISORDER
     Dosage: 200 MG, HS; PO
     Route: 048
     Dates: start: 20020101, end: 20060901
  2. ALPRAZOLAM [Concomitant]
  3. CAPTOPRIL [Concomitant]
  4. FUROSEMIDE [Concomitant]
  5. CLOPIDOGREL [Concomitant]
  6. SENNA ALEXANDRINA [Concomitant]
  7. RANITIDINE HYDROCHLORIDE [Concomitant]
  8. PROTEIN SUPPLEMENTS [Concomitant]
  9. BENAZEPRIL HYDROCHLORIDE [Concomitant]

REACTIONS (4)
  - CEREBROVASCULAR ACCIDENT [None]
  - DYSPNOEA [None]
  - MYOCARDIAL INFARCTION [None]
  - SUDDEN DEATH [None]
